FAERS Safety Report 4599817-2 (Version None)
Quarter: 2005Q1

REPORT INFORMATION
  Report Type: 
  Country: None (occurrence: None)
  Receive Date: 20050303
  Receipt Date: 20050224
  Transmission Date: 20050727
  Serious: Yes (Hospitalization)
  Sender: FDA-Public Use
  Company Number: 230700K05USA

PATIENT
  Age: 49 Year
  Sex: Male

DRUGS (2)
  1. REBIF [Suspect]
     Indication: MULTIPLE SCLEROSIS
     Dosage: 44 MCG, 3 IN 1 WEEK, NOT REPORTED
     Dates: start: 20020722
  2. INSULIN [Concomitant]

REACTIONS (7)
  - BLOOD GLUCOSE FLUCTUATION [None]
  - CELLULITIS [None]
  - ERYSIPELAS [None]
  - INJECTION SITE INFECTION [None]
  - NASOPHARYNGITIS [None]
  - STREPTOCOCCAL INFECTION [None]
  - TREATMENT NONCOMPLIANCE [None]
